FAERS Safety Report 5060655-8 (Version None)
Quarter: 2006Q2

REPORT INFORMATION
  Report Type: 
  Country: None (occurrence: None)
  Receive Date: 20060630
  Receipt Date: 20060130
  Transmission Date: 20061013
  Serious: Yes (Other)
  Sender: FDA-Public Use
  Company Number: US_980707790

PATIENT
  Sex: Female

DRUGS (5)
  1. HUMULIN N [Suspect]
     Indication: DIABETES MELLITUS
     Dosage: 18 U, DAILY (1/D), SUBCUTANEOUS
     Route: 058
  2. HUMALOG [Suspect]
     Indication: DIABETES MELLITUS
     Dosage: DAILY (1/D), SUBCUTANEOUS
     Route: 058
     Dates: start: 19990101
  3. HUMULIN R [Suspect]
     Indication: DIABETES MELLITUS
     Dosage: DAILY (1/D), SUBCUTANEOUS
     Route: 058
  4. PROVERA [Concomitant]
  5. PREMARIN [Concomitant]

REACTIONS (20)
  - ALANINE AMINOTRANSFERASE INCREASED [None]
  - BLOOD GLUCOSE INCREASED [None]
  - CERULOPLASMIN DECREASED [None]
  - DRUG ADMINISTRATION ERROR [None]
  - DRUG HYPERSENSITIVITY [None]
  - DRY SKIN [None]
  - EAR PAIN [None]
  - FORMICATION [None]
  - HAIR GROWTH ABNORMAL [None]
  - HYPERAESTHESIA [None]
  - HYPOGLYCAEMIA [None]
  - INJECTION SITE HAEMATOMA [None]
  - LOSS OF CONSCIOUSNESS [None]
  - MEMORY IMPAIRMENT [None]
  - OEDEMA PERIPHERAL [None]
  - PERIPHERAL COLDNESS [None]
  - RASH [None]
  - SOMNOLENCE [None]
  - SWELLING FACE [None]
  - URINE COPPER INCREASED [None]
